FAERS Safety Report 6856728-7 (Version None)
Quarter: 2010Q3

REPORT INFORMATION
  Report Type: 
  Country: None (occurrence: None)
  Receive Date: 20100719
  Receipt Date: 20100707
  Transmission Date: 20110219
  Serious: Yes (Hospitalization, Other)
  Sender: FDA-Public Use
  Company Number: US-PFIZER INC-2008015124

PATIENT
  Sex: Female
  Weight: 70 kg

DRUGS (9)
  1. DILANTIN-125 [Suspect]
     Indication: EPILEPSY
     Dosage: UNK
     Dates: start: 19800101
  2. DILANTIN [Suspect]
     Indication: EPILEPSY
     Dosage: 400 MG, DAILY
     Dates: start: 20091109
  3. LYRICA [Suspect]
     Indication: CONVULSION
     Dosage: 75 MG, 1X/DAY
     Route: 048
     Dates: start: 20080101
  4. TOPAMAX [Concomitant]
     Dosage: 450 MG, DAILY
  5. SYNTHROID [Concomitant]
     Dosage: 125 MG, DAILY
  6. PAXIL [Concomitant]
  7. VITAMIN C [Concomitant]
  8. MULTI-VITAMINS [Concomitant]
  9. FOLTX [Concomitant]
     Dosage: 200 MG, DAILY

REACTIONS (10)
  - BRAIN OPERATION [None]
  - CONVULSION [None]
  - DRUG TOXICITY [None]
  - ELECTROENCEPHALOGRAM ABNORMAL [None]
  - GINGIVAL DISORDER [None]
  - HYPERSENSITIVITY [None]
  - NAUSEA [None]
  - PRURITUS [None]
  - RASH [None]
  - TOOTH EROSION [None]
